FAERS Safety Report 24275328 (Version 2)
Quarter: 2025Q1

REPORT INFORMATION
  Report Type: Spontaneous
  Country: CA (occurrence: CA)
  Receive Date: 20240903
  Receipt Date: 20250207
  Transmission Date: 20250409
  Serious: Yes (Other)
  Sender: AUROBINDO
  Company Number: CA-AUROBINDO-AUR-APL-2024-042321

PATIENT
  Age: 16 Year
  Sex: Male

DRUGS (5)
  1. LEVETIRACETAM [Suspect]
     Active Substance: LEVETIRACETAM
     Indication: Epilepsy
     Route: 065
  2. LACOSAMIDE [Suspect]
     Active Substance: LACOSAMIDE
     Indication: Epilepsy
     Route: 065
  3. VALPROIC ACID [Suspect]
     Active Substance: VALPROIC ACID
     Indication: Epilepsy
     Route: 065
  4. TETRABENAZINE [Concomitant]
     Active Substance: TETRABENAZINE
     Indication: Hyperkinesia
     Route: 065
  5. TETRABENAZINE [Concomitant]
     Active Substance: TETRABENAZINE
     Indication: Movement disorder

REACTIONS (1)
  - Drug ineffective [Unknown]
